FAERS Safety Report 7099218-1 (Version None)
Quarter: 2010Q4

REPORT INFORMATION
  Report Type: 
  Country: None (occurrence: None)
  Receive Date: 20101112
  Receipt Date: 20101101
  Transmission Date: 20110411
  Serious: Yes (Other)
  Sender: FDA-Public Use
  Company Number: US-AMGEN-USASP2010003757

PATIENT

DRUGS (1)
  1. ENBREL [Suspect]
     Dosage: UNK UNK, QWK
     Route: 058

REACTIONS (1)
  - GUILLAIN-BARRE SYNDROME [None]
